FAERS Safety Report 4798647-6 (Version None)
Quarter: 2005Q4

REPORT INFORMATION
  Report Type: 
  Country: None (occurrence: None)
  Receive Date: 20051014
  Receipt Date: 20051011
  Transmission Date: 20060501
  Serious: Yes (Other)
  Sender: FDA-Public Use
  Company Number: US-JNJFOC-20050704448

PATIENT
  Sex: Female

DRUGS (10)
  1. FENTANYL [Suspect]
     Route: 062
     Dates: start: 20050218, end: 20050329
  2. FENTANYL [Suspect]
     Route: 062
     Dates: start: 20050218, end: 20050329
  3. NOVOLIN [Concomitant]
     Dosage: 75 UNITS, 50 UNITS IN THE MORNING, 25 UNITS AT DINNER TIME
     Route: 058
     Dates: start: 19900101
  4. PREMARIN [Concomitant]
     Indication: HORMONE REPLACEMENT THERAPY
     Route: 048
     Dates: start: 19970101
  5. ASPIRIN [Concomitant]
     Route: 048
     Dates: start: 20040101
  6. ZOCOR [Concomitant]
     Route: 048
     Dates: start: 20040101
  7. METOPROLOL TARTRATE [Concomitant]
     Route: 048
  8. LISINOPRIL [Concomitant]
     Route: 048
     Dates: start: 20040101
  9. FUROSEMIDE [Concomitant]
     Indication: FLUID RETENTION
     Route: 048
     Dates: start: 20040101
  10. CELEBREX [Concomitant]
     Indication: ARTHRITIS
     Route: 048
     Dates: start: 20050401

REACTIONS (7)
  - DIZZINESS [None]
  - DRUG INEFFECTIVE [None]
  - DYSPNOEA [None]
  - HYPERHIDROSIS [None]
  - NAUSEA [None]
  - PANIC ATTACK [None]
  - SELF-INJURIOUS IDEATION [None]
